FAERS Safety Report 21045084 (Version 4)
Quarter: 2022Q4

REPORT INFORMATION
  Report Type: Spontaneous
  Country: JP (occurrence: JP)
  Receive Date: 20220705
  Receipt Date: 20221117
  Transmission Date: 20230113
  Serious: Yes (Other)
  Sender: FDA-Public Use
  Company Number: JP-NOVARTISPH-NVSJ2022JP089731

PATIENT
  Age: 74 Year
  Sex: Female

DRUGS (1)
  1. BEOVU [Suspect]
     Active Substance: BROLUCIZUMAB-DBLL
     Indication: Age-related macular degeneration
     Dosage: 6 MG
     Route: 031
     Dates: start: 20220301, end: 20220301

REACTIONS (8)
  - Anterior chamber inflammation [Recovering/Resolving]
  - Vitreous opacities [Unknown]
  - Retinal artery occlusion [Unknown]
  - Vision blurred [Unknown]
  - Visual acuity reduced transiently [Not Recovered/Not Resolved]
  - Age-related macular degeneration [Recovering/Resolving]
  - Condition aggravated [Recovering/Resolving]
  - Iritis [Unknown]

NARRATIVE: CASE EVENT DATE: 20220507
